FAERS Safety Report 5885547-3 (Version None)
Quarter: 2008Q3

REPORT INFORMATION
  Report Type: 
  Country: None (occurrence: None)
  Receive Date: 20080915
  Receipt Date: 20080915
  Transmission Date: 20090109
  Serious: No
  Sender: FDA-Public Use
  Company Number: None

PATIENT
  Sex: Female

DRUGS (2)
  1. MERCAPTOPURINE [Suspect]
     Dosage: TABLET 50 MG
  2. PROPYL-THIOURACIL [Suspect]
     Dosage: TABLET 50 MG

REACTIONS (3)
  - HEPATOTOXICITY [None]
  - MEDICATION ERROR [None]
  - WRONG DRUG ADMINISTERED [None]
